FAERS Safety Report 9174068 (Version 1)
Quarter: 2013Q1

REPORT INFORMATION
  Report Type: Spontaneous
  Country: FR (occurrence: FR)
  Receive Date: 20130320
  Receipt Date: 20130320
  Transmission Date: 20140127
  Serious: Yes (Other)
  Sender: FDA-Public Use
  Company Number: FR-PFIZER INC-2013088553

PATIENT
  Age: 43 Year
  Sex: Male

DRUGS (1)
  1. DOSTINEX [Suspect]
     Dosage: 2 DF, WEEKLY
     Dates: start: 2007

REACTIONS (1)
  - Prostatic adenoma [Unknown]
